FAERS Safety Report 8681056 (Version 6)
Quarter: 2012Q4

REPORT INFORMATION
  Report Type: 
  Country: FR (occurrence: FR)
  Receive Date: 20120724
  Receipt Date: 20121024
  Transmission Date: 20130627
  Serious: Yes (Hospitalization, Other)
  Sender: FDA-Public Use
  Company Number: FR-PFIZER INC-2012175579

PATIENT
  Age: 83 Year
  Sex: Female

DRUGS (15)
  1. ARICEPT [Suspect]
     Indication: DEMENTIA ALZHEIMER^S TYPE
     Dosage: UNK
     Route: 048
     Dates: start: 201002, end: 201207
  2. ALPRAZOLAM [Suspect]
     Indication: DEPRESSION
     Dosage: UNK
     Route: 048
  3. ATHYMIL [Suspect]
     Indication: DEPRESSION
     Dosage: UNK
     Route: 048
  4. ZOLPIDEM [Suspect]
     Indication: DEPRESSION
     Dosage: UNK
     Route: 048
  5. DEROXAT [Concomitant]
     Indication: DEPRESSION
  6. COVERSYL [Concomitant]
     Indication: HYPERTENSION
     Dosage: UNK
     Route: 048
  7. STILNOX [Concomitant]
  8. EUPANTHOL [Concomitant]
     Dosage: UNK
  9. TAHOR [Concomitant]
     Indication: HYPERCHOLESTEROLAEMIA
     Dosage: UNK
     Route: 048
  10. SERETIDE [Concomitant]
     Indication: ASTHMA
     Dosage: UNK
     Dates: start: 201204
  11. BRICANYL [Concomitant]
  12. ATARAX [Concomitant]
     Indication: DEPRESSION
     Dosage: UNK
  13. PULMICORT [Concomitant]
     Indication: ASTHMA
     Dosage: UNK
     Dates: start: 201204
  14. ATORVASTATIN [Concomitant]
     Indication: HYPERCHOLESTEROLAEMIA
     Dosage: UNK
     Route: 048
  15. PERINDOPRIL [Concomitant]
     Indication: HYPERTENSION
     Dosage: UNK
     Route: 048

REACTIONS (5)
  - Electrocardiogram QT prolonged [Recovered/Resolved]
  - Malaise [Unknown]
  - Fall [Unknown]
  - Bradycardia [Not Recovered/Not Resolved]
  - Asthma [Unknown]
